FAERS Safety Report 8597216-X (Version None)
Quarter: 2012Q3

REPORT INFORMATION
  Report Type: 
  Country: None (occurrence: None)
  Receive Date: 20120816
  Receipt Date: 20120809
  Transmission Date: 20120928
  Serious: No
  Sender: FDA-Public Use
  Company Number: US-BIOGENIDEC-2012BI030998

PATIENT
  Sex: Male

DRUGS (1)
  1. TYSABRI [Suspect]
     Indication: MULTIPLE SCLEROSIS
     Route: 042
     Dates: start: 20110809, end: 20111212

REACTIONS (5)
  - PROGRESSIVE MULTIPLE SCLEROSIS [None]
  - FATIGUE [None]
  - PAIN IN EXTREMITY [None]
  - PAIN [None]
  - ABASIA [None]
